FAERS Safety Report 8304048-6 (Version None)
Quarter: 2012Q2

REPORT INFORMATION
  Report Type: 
  Country: None (occurrence: None)
  Receive Date: 20120418
  Receipt Date: 20120404
  Transmission Date: 20120825
  Serious: Yes (Hospitalization)
  Sender: FDA-Public Use
  Company Number: 2012AP000601

PATIENT
  Age: 68 Year
  Sex: Male

DRUGS (7)
  1. SOLU-MEDROL [Suspect]
     Indication: IMMUNOSUPPRESSION
     Dosage: 100 MG;QD; 50 MG;QD
  2. MYCOPHENOLATE MOFETIL [Suspect]
     Indication: IMMUNOSUPPRESSION
     Dosage: 540 MG; BID; 1440 MG; QD;
  3. SIROLIMUS [Suspect]
     Indication: IMMUNOSUPPRESSION
  4. TACROLIMUS [Suspect]
     Dosage: 2 MG; BID; 3 MG; BID;
  5. THYMOGLOBULIN [Suspect]
     Indication: IMMUNOSUPPRESSION
     Dosage: 4 MG/KG; QD; 1 MG/KG;QD
  6. METHYLPREDNISOLONE [Suspect]
     Indication: IMMUNOSUPPRESSION
  7. PREDNISONE [Suspect]
     Indication: IMMUNOSUPPRESSION
     Dosage: 20 G;QD;

REACTIONS (18)
  - HYPOPHAGIA [None]
  - ARTERIOVENOUS FISTULA OCCLUSION [None]
  - TOXICITY TO VARIOUS AGENTS [None]
  - PNEUMONIA [None]
  - KIDNEY TRANSPLANT REJECTION [None]
  - THROMBOTIC MICROANGIOPATHY [None]
  - ANAEMIA [None]
  - BLOOD CREATININE INCREASED [None]
  - CHRONIC ALLOGRAFT NEPHROPATHY [None]
  - HAEMODIALYSIS [None]
  - KIDNEY FIBROSIS [None]
  - RENAL ISCHAEMIA [None]
  - COMPLICATIONS OF TRANSPLANTED KIDNEY [None]
  - FATIGUE [None]
  - DIARRHOEA [None]
  - ARTERIOVENOUS FISTULA THROMBOSIS [None]
  - MALAISE [None]
  - RENAL TUBULAR ATROPHY [None]
